FAERS Safety Report 12933304 (Version 1)
Quarter: 2016Q4

REPORT INFORMATION
  Report Type: Spontaneous
  Country: CH (occurrence: FR)
  Receive Date: 20161111
  Receipt Date: 20161111
  Transmission Date: 20170207
  Serious: Yes (Disabling)
  Sender: FDA-Public Use
  Company Number: CH-LPDUSPRD-20160975

PATIENT
  Age: 41 Year
  Sex: Female

DRUGS (1)
  1. VENOFER [Suspect]
     Active Substance: IRON SUCROSE
     Dosage: 100MG
     Route: 041
     Dates: start: 20150125, end: 20150127

REACTIONS (6)
  - Thrombophlebitis superficial [Recovered/Resolved with Sequelae]
  - Atrophy [Recovered/Resolved with Sequelae]
  - Off label use [Unknown]
  - Injection site inflammation [Recovered/Resolved with Sequelae]
  - Injection site pain [Recovered/Resolved with Sequelae]
  - Inappropriate schedule of drug administration [Unknown]

NARRATIVE: CASE EVENT DATE: 20150127
